FAERS Safety Report 5609287-0 (Version None)
Quarter: 2008Q1

REPORT INFORMATION
  Report Type: 
  Country: None (occurrence: None)
  Receive Date: 20080131
  Receipt Date: 20080125
  Transmission Date: 20080703
  Serious: Yes (Other)
  Sender: FDA-Public Use
  Company Number: US-ELI_LILLY_AND_COMPANY-US200801005926

PATIENT
  Sex: Female

DRUGS (6)
  1. EVISTA [Suspect]
     Dosage: 60 MG, UNK
     Dates: start: 20030101, end: 20080125
  2. LASIX [Concomitant]
     Dosage: 20 MG, UNK
  3. LASIX [Concomitant]
     Dosage: 80 MG, UNK
     Dates: start: 20071101
  4. DILTIAZEM HCL [Concomitant]
     Dosage: 120 MG, UNK
  5. DILTIAZEM HCL [Concomitant]
     Dosage: 240 MG, UNK
     Dates: start: 20070101
  6. LENOXIN [Concomitant]
     Dosage: 20 MG, UNK

REACTIONS (7)
  - CARDIAC DISORDER [None]
  - FALL [None]
  - IMPAIRED HEALING [None]
  - JOINT INJURY [None]
  - OEDEMA PERIPHERAL [None]
  - STRESS [None]
  - WEIGHT BEARING DIFFICULTY [None]
